FAERS Safety Report 9924480 (Version 7)
Quarter: 2014Q3

REPORT INFORMATION
  Report Type: Report from Study
  Country: RS (occurrence: RS)
  Receive Date: 20140226
  Receipt Date: 20140915
  Transmission Date: 20150326
  Serious: Yes (Other)
  Sender: FDA-Public Use
  Company Number: RS-ASTELLAS-2014EU001539

PATIENT
  Age: 18 Year
  Sex: Female
  Weight: 60 kg

DRUGS (2)
  1. UTROGESTAN [Concomitant]
     Active Substance: PROGESTERONE
     Indication: UTERINE CONTRACTIONS ABNORMAL
     Route: 048
     Dates: start: 20140403
  2. SOLIFENACIN [Suspect]
     Active Substance: SOLIFENACIN
     Indication: HYPERTONIC BLADDER
     Dosage: 4.6 ML, ONCE DAILY
     Route: 048
     Dates: start: 20130905, end: 20140210

REACTIONS (1)
  - Exposure during pregnancy [Unknown]

NARRATIVE: CASE EVENT DATE: 20140211
